FAERS Safety Report 11531994 (Version 1)
Quarter: 2015Q3

REPORT INFORMATION
  Report Type: Report from Study
  Country: DE (occurrence: DE)
  Receive Date: 20150921
  Receipt Date: 20150921
  Transmission Date: 20151125
  Serious: Yes (Other)
  Sender: FDA-Public Use
  Company Number: DE-ABBVIE-15K-062-1396635-00

PATIENT
  Age: 34 Year
  Sex: Male
  Weight: 77 kg

DRUGS (6)
  1. MELPERON [Concomitant]
     Active Substance: MELPERONE
     Indication: BIPOLAR DISORDER
     Dosage: 25 TO 50 MG
     Route: 048
     Dates: start: 20140325
  2. NORVIR [Suspect]
     Active Substance: RITONAVIR
     Indication: HIV INFECTION CDC CATEGORY A
     Route: 048
     Dates: start: 20130701
  3. MIRTAZAPINE. [Concomitant]
     Active Substance: MIRTAZAPINE
     Indication: BIPOLAR DISORDER
     Route: 048
     Dates: start: 20140325
  4. PREZISTA [Concomitant]
     Active Substance: DARUNAVIR ETHANOLATE
     Indication: HIV INFECTION CDC CATEGORY A
     Route: 048
     Dates: start: 20130701
  5. TRUVADA [Concomitant]
     Active Substance: EMTRICITABINE\TENOFOVIR DISOPROXIL FUMARATE
     Indication: HIV INFECTION CDC CATEGORY A
     Dosage: 200/245 MG
     Route: 048
     Dates: start: 20130701
  6. HARVONI [Suspect]
     Active Substance: LEDIPASVIR\SOFOSBUVIR
     Indication: CHRONIC HEPATITIS C
     Route: 048
     Dates: start: 20150111, end: 20150307

REACTIONS (1)
  - Gastroenteritis [Recovered/Resolved with Sequelae]

NARRATIVE: CASE EVENT DATE: 20150204
